FAERS Safety Report 12313470 (Version 3)
Quarter: 2016Q2

REPORT INFORMATION
  Report Type: Spontaneous
  Country: FR (occurrence: FR)
  Receive Date: 20160428
  Receipt Date: 20160622
  Transmission Date: 20160815
  Serious: Yes (Hospitalization, Other)
  Sender: FDA-Public Use
  Company Number: FR-BAYER-2016-078235

PATIENT
  Age: 84 Year
  Sex: Male

DRUGS (5)
  1. STIVARGA [Suspect]
     Active Substance: REGORAFENIB
     Indication: METASTASES TO LUNG
     Dosage: 120 MG, QD
     Route: 048
     Dates: start: 20160302, end: 20160318
  2. TANAKAN [Concomitant]
     Active Substance: GINKGO
  3. STIVARGA [Suspect]
     Active Substance: REGORAFENIB
     Indication: COLORECTAL CANCER METASTATIC
     Dosage: 80 MG, QD
     Route: 048
     Dates: start: 20160127, end: 20160302
  4. DAFALGAN [Concomitant]
     Active Substance: ACETAMINOPHEN
  5. STIVARGA [Suspect]
     Active Substance: REGORAFENIB
     Indication: METASTASES TO LIVER
     Dosage: 120 MG, QD
     Dates: start: 20160302, end: 20160420

REACTIONS (5)
  - Dry skin [None]
  - Protein total decreased [None]
  - Nephrotic syndrome [None]
  - Proteinuria [Recovering/Resolving]
  - Mucosal inflammation [None]

NARRATIVE: CASE EVENT DATE: 20160302
